FAERS Safety Report 13729018 (Version 1)
Quarter: 2017Q3

REPORT INFORMATION
  Report Type: Spontaneous
  Country: US (occurrence: US)
  Receive Date: 20170707
  Receipt Date: 20170707
  Transmission Date: 20171127
  Serious: Yes (Other)
  Sender: FDA-Public Use
  Company Number: US-ALVOGEN-2017-ALVOGEN-092647

PATIENT
  Age: 77 Year
  Sex: Male
  Weight: 79.38 kg

DRUGS (3)
  1. OXYCODONE/APAP [Suspect]
     Active Substance: ACETAMINOPHEN\OXYCODONE HYDROCHLORIDE
     Indication: SPINAL PAIN
     Dosage: OXYCODONE/APAP 10/325 MG
     Route: 048
     Dates: start: 20170424
  2. FINASTERIDE. [Concomitant]
     Active Substance: FINASTERIDE
  3. PLAVIX [Concomitant]
     Active Substance: CLOPIDOGREL BISULFATE
     Dosage: FOR CHOLESTEROL

REACTIONS (3)
  - Paraesthesia [Not Recovered/Not Resolved]
  - Generalised tonic-clonic seizure [Not Recovered/Not Resolved]
  - Somnolence [Not Recovered/Not Resolved]
